FAERS Safety Report 14337165 (Version 1)
Quarter: 2017Q4

REPORT INFORMATION
  Report Type: Spontaneous
  Country: US (occurrence: US)
  Receive Date: 20171228
  Receipt Date: 20171228
  Transmission Date: 20180321
  Serious: Yes (Hospitalization)
  Sender: FDA-Public Use
  Company Number: None

PATIENT
  Sex: Male
  Weight: 97.2 kg

DRUGS (8)
  1. VITAMIN B COMPLEX [Concomitant]
     Active Substance: CYANOCOBALAMIN\DEXPANTHENOL\NIACINAMIDE\PYRIDOXINE HYDROCHLORIDE\RIBOFLAVIN 5^-PHOSPHATE SODIUM\THIAMINE HYDROCHLORIDE\VITAMIN B COMPLEX
  2. CALCIUM +D3 [Concomitant]
     Active Substance: CALCIUM\CHOLECALCIFEROL
  3. PREDNISONE. [Concomitant]
     Active Substance: PREDNISONE
  4. TASIGNA [Suspect]
     Active Substance: NILOTINIB
     Indication: PROSTATE CANCER
     Route: 048
     Dates: start: 20171007
  5. CHERATUSSIN AC [Concomitant]
     Active Substance: CODEINE PHOSPHATE\GUAIFENESIN
  6. TYLENOL [Concomitant]
     Active Substance: ACETAMINOPHEN
  7. CAFFEINE. [Concomitant]
     Active Substance: CAFFEINE
  8. LOSARTAN. [Concomitant]
     Active Substance: LOSARTAN

REACTIONS (1)
  - Clostridium difficile infection [None]
